FAERS Safety Report 4753984-6 (Version None)
Quarter: 2005Q3

REPORT INFORMATION
  Report Type: 
  Country: None (occurrence: None)
  Receive Date: 20050826
  Receipt Date: 20050815
  Transmission Date: 20060218
  Serious: Yes (Disabling, Other)
  Sender: FDA-Public Use
  Company Number: 2005116450

PATIENT
  Age: 56 Year
  Sex: Male
  Weight: 124.7392 kg

DRUGS (4)
  1. NARDIL [Suspect]
     Indication: DEPRESSION
     Dosage: 90 MG (15 MG, 6 IN 1 D), ORAL
     Route: 048
  2. LITHIUM CARBONATE [Concomitant]
  3. ZYPREXA [Concomitant]
  4. PROPRANOLOL [Concomitant]

REACTIONS (1)
  - KNEE ARTHROPLASTY [None]
